FAERS Safety Report 18371968 (Version 1)
Quarter: 2020Q4

REPORT INFORMATION
  Report Type: Spontaneous
  Country: US (occurrence: US)
  Receive Date: 20201012
  Receipt Date: 20201012
  Transmission Date: 20210114
  Serious: No
  Sender: FDA-Public Use
  Company Number: US-TEVA-2020-US-1837102

PATIENT
  Age: 81 Year
  Sex: Female

DRUGS (1)
  1. MUPIROCIN TEVA [Suspect]
     Active Substance: MUPIROCIN
     Indication: INFECTION PROPHYLAXIS
     Route: 061
     Dates: start: 20200901, end: 20201004

REACTIONS (3)
  - Product administered at inappropriate site [Unknown]
  - Dizziness [Not Recovered/Not Resolved]
  - Abdominal discomfort [Not Recovered/Not Resolved]

NARRATIVE: CASE EVENT DATE: 20200901
